FAERS Safety Report 5409967-6 (Version None)
Quarter: 2007Q3

REPORT INFORMATION
  Report Type: 
  Country: None (occurrence: None)
  Receive Date: 20070809
  Receipt Date: 20070730
  Transmission Date: 20080115
  Serious: Yes (Other)
  Sender: FDA-Public Use
  Company Number: US-PFIZER INC-2007062720

PATIENT

DRUGS (1)
  1. LIPITOR [Suspect]

REACTIONS (1)
  - ARTERIOSCLEROSIS CORONARY ARTERY [None]
